FAERS Safety Report 22070050 (Version 2)
Quarter: 2024Q1

REPORT INFORMATION
  Report Type: Spontaneous
  Country: GB (occurrence: GB)
  Receive Date: 20230307
  Receipt Date: 20240130
  Transmission Date: 20240410
  Serious: Yes (Other)
  Sender: FDA-Public Use
  Company Number: None

PATIENT

DRUGS (2)
  1. LAMOTRIGINE [Suspect]
     Active Substance: LAMOTRIGINE
     Indication: Epilepsy
     Dosage: DISSOLVABLE TABLETS
     Route: 048
  2. LAMOTRIGINE [Suspect]
     Active Substance: LAMOTRIGINE
     Indication: Epilepsy
     Dosage: UNKNOWN
     Route: 048

REACTIONS (7)
  - Generalised tonic-clonic seizure [Unknown]
  - Foreign body in throat [Unknown]
  - Product substitution issue [Unknown]
  - Illness [Unknown]
  - Product use complaint [Unknown]
  - Drug ineffective [Unknown]
  - Brain fog [Unknown]
